FAERS Safety Report 4969868-4 (Version None)
Quarter: 2006Q2

REPORT INFORMATION
  Report Type: 
  Country: None (occurrence: None)
  Receive Date: 20060406
  Receipt Date: 20060320
  Transmission Date: 20061013
  Serious: Yes (Hospitalization)
  Sender: FDA-Public Use
  Company Number: US200603005355

PATIENT
  Age: 71 Year
  Sex: Female

DRUGS (2)
  1. FORTEO [Suspect]
     Indication: OSTEOPOROSIS
     Dosage: 20 UG, DAILY (1/D)
     Dates: start: 20031001, end: 20040101
  2. FORTEO [Concomitant]

REACTIONS (9)
  - ABDOMINAL PAIN UPPER [None]
  - BACK DISORDER [None]
  - DIARRHOEA [None]
  - FATIGUE [None]
  - RIB FRACTURE [None]
  - SLEEP TALKING [None]
  - SLEEP WALKING [None]
  - SPINAL FRACTURE [None]
  - WEIGHT DECREASED [None]
